FAERS Safety Report 6832517-4 (Version None)
Quarter: 2010Q3

REPORT INFORMATION
  Report Type: 
  Country: None (occurrence: None)
  Receive Date: 20100712
  Receipt Date: 20070314
  Transmission Date: 20110219
  Serious: No
  Sender: FDA-Public Use
  Company Number: US-PFIZER INC-2007021348

PATIENT
  Sex: Female
  Weight: 73.94 kg

DRUGS (5)
  1. CHANTIX [Suspect]
     Indication: SMOKING CESSATION THERAPY
     Dates: start: 20070201
  2. CIPROFLOXACIN [Suspect]
     Indication: INFLUENZA
     Dates: start: 20070226
  3. FLEXERIL [Concomitant]
  4. LORCET-HD [Concomitant]
  5. LUNESTA [Concomitant]

REACTIONS (2)
  - BLISTER [None]
  - INFLUENZA [None]
